FAERS Safety Report 15642534 (Version 3)
Quarter: 2019Q1

REPORT INFORMATION
  Report Type: Report from Study
  Country: US (occurrence: US)
  Receive Date: 20181121
  Receipt Date: 20190111
  Transmission Date: 20190417
  Serious: Yes (Hospitalization, Other)
  Sender: FDA-Public Use
  Company Number: US-GILEAD-2018-0374132

PATIENT
  Age: 60 Year
  Sex: Female

DRUGS (2)
  1. AMBRISENTAN [Suspect]
     Active Substance: AMBRISENTAN
     Indication: PRODUCT USED FOR UNKNOWN INDICATION
     Dosage: 10 MG, QD
     Route: 065
     Dates: start: 20150130
  2. VELETRI [Concomitant]
     Active Substance: EPOPROSTENOL

REACTIONS (11)
  - Fluid retention [Not Recovered/Not Resolved]
  - Malignant melanoma [Unknown]
  - Renal disorder [Unknown]
  - Back pain [Unknown]
  - Nasopharyngitis [Not Recovered/Not Resolved]
  - Rhinorrhoea [Not Recovered/Not Resolved]
  - Sinusitis [Not Recovered/Not Resolved]
  - Nasal congestion [Not Recovered/Not Resolved]
  - Toothache [Not Recovered/Not Resolved]
  - Chest discomfort [Unknown]
  - Lacrimation increased [Not Recovered/Not Resolved]
